FAERS Safety Report 19583181 (Version 1)
Quarter: 2021Q3

REPORT INFORMATION
  Report Type: Spontaneous
  Country: US (occurrence: US)
  Receive Date: 20210720
  Receipt Date: 20210720
  Transmission Date: 20211014
  Serious: No
  Sender: FDA-Public Use
  Company Number: None

PATIENT
  Age: 55 Year
  Sex: Female
  Weight: 56.7 kg

DRUGS (9)
  1. XANAX [Concomitant]
     Active Substance: ALPRAZOLAM
  2. MULTI [Concomitant]
  3. ZINC. [Concomitant]
     Active Substance: ZINC
  4. ALPRAZOLAM 2MG TABLETS [Suspect]
     Active Substance: ALPRAZOLAM
     Indication: INSOMNIA
     Dosage: ?          QUANTITY:120 TABLET(S);?
     Route: 048
  5. ENTYVIO [Concomitant]
     Active Substance: VEDOLIZUMAB
  6. ALPRAZOLAM 2MG TABLETS [Suspect]
     Active Substance: ALPRAZOLAM
     Indication: ANXIETY
     Dosage: ?          QUANTITY:120 TABLET(S);?
     Route: 048
  7. CALCIUM [Concomitant]
     Active Substance: CALCIUM
  8. MAGNESIUM [Concomitant]
     Active Substance: MAGNESIUM
  9. PROBIOTIC [Concomitant]
     Active Substance: PROBIOTICS NOS

REACTIONS (4)
  - Product quality issue [None]
  - Drug ineffective [None]
  - Manufacturing issue [None]
  - Product colour issue [None]

NARRATIVE: CASE EVENT DATE: 20210104
